FAERS Safety Report 8770715 (Version 4)
Quarter: 2013Q1

REPORT INFORMATION
  Report Type: Spontaneous
  Country: US (occurrence: US)
  Receive Date: 20120906
  Receipt Date: 20130228
  Transmission Date: 20140127
  Serious: Yes (Other)
  Sender: FDA-Public Use
  Company Number: US-009507513-1208USA011545

PATIENT
  Age: 55 None
  Sex: Male

DRUGS (6)
  1. RIBAVIRIN [Suspect]
     Indication: HEPATITIS C
     Dosage: UNK
     Route: 048
     Dates: start: 20120625, end: 20130107
  2. VICTRELIS [Suspect]
     Indication: HEPATITIS C
     Dosage: UNK
     Route: 048
     Dates: start: 20120723, end: 20130107
  3. PEGASYS [Concomitant]
     Indication: HEPATITIS C
     Dosage: UNK
     Dates: start: 20120625, end: 20130107
  4. INSULIN [Concomitant]
     Indication: TYPE 2 DIABETES MELLITUS
  5. CYMBALTA [Concomitant]
     Indication: DEPRESSION
  6. METHADONE HYDROCHLORIDE [Concomitant]
     Indication: PAIN

REACTIONS (33)
  - Hypothyroidism [Unknown]
  - Diabetes mellitus [Unknown]
  - Hypothyroidism [Unknown]
  - Blood glucose abnormal [Unknown]
  - Depression [Unknown]
  - Anger [Unknown]
  - Pruritus [Unknown]
  - Anxiety [Unknown]
  - Tremor [Unknown]
  - Depression [Unknown]
  - Pain in extremity [Unknown]
  - Gait disturbance [Unknown]
  - Skin fissures [Unknown]
  - Influenza like illness [Unknown]
  - Feeling hot [Unknown]
  - Throat irritation [Unknown]
  - Malaise [Unknown]
  - Peroneal nerve palsy [Unknown]
  - Fall [Unknown]
  - Contusion [Unknown]
  - Influenza like illness [Unknown]
  - Headache [Unknown]
  - Abnormal sensation in eye [Unknown]
  - Rash [Unknown]
  - Chills [Unknown]
  - Chills [Unknown]
  - Fatigue [Unknown]
  - Dry skin [Unknown]
  - Asthenia [Unknown]
  - Asthenia [Unknown]
  - Asthenia [Unknown]
  - Haemoglobin decreased [Unknown]
  - Hypothyroidism [Unknown]
